FAERS Safety Report 9828628 (Version 2)
Quarter: 2014Q2

REPORT INFORMATION
  Report Type: Spontaneous
  Country: US (occurrence: US)
  Receive Date: 20140117
  Receipt Date: 20140410
  Transmission Date: 20141212
  Serious: No
  Sender: FDA-Public Use
  Company Number: US-PFIZER INC-2014012429

PATIENT
  Age: 54 Year
  Sex: Female
  Weight: 62.13 kg

DRUGS (19)
  1. XELJANZ [Suspect]
     Indication: RHEUMATOID ARTHRITIS
     Dosage: 5 MG, 2X/DAY
     Route: 048
     Dates: start: 201311, end: 201404
  2. HYDROXYCHLOROQUINE [Concomitant]
     Dosage: UNK
  3. METHOTREXATE [Concomitant]
     Dosage: UNK
  4. SINGULAIR [Concomitant]
     Dosage: 10 MG, UNK
  5. JANUVIA [Concomitant]
     Dosage: 25 MG, UNK
  6. LYRICA [Concomitant]
     Dosage: 100 MG, UNK
  7. VICODIN [Concomitant]
     Dosage: HYDROCODONE BITARTRATE 5MG - PARACETAMOL 500 MG
  8. GABAPENTIN [Concomitant]
     Dosage: 100 MG, UNK
  9. METFORMIN [Concomitant]
     Dosage: 500 MG, UNK
  10. LISINOPRIL [Concomitant]
     Dosage: 2.5 MG, UNK
  11. CITALOPRAM [Concomitant]
     Dosage: 10 MG, UNK
  12. OMEPRAZOLE [Concomitant]
     Dosage: 20 MG, UNK
  13. FENTANYL [Concomitant]
     Dosage: 25 MCG/HR
  14. ATORVASTATIN [Concomitant]
     Dosage: 10 MG, UNK
  15. FISH OIL [Concomitant]
     Dosage: UNK
  16. VITAMIN D3 [Concomitant]
     Dosage: 1000 IU, UNK
  17. LEVOTHYROXINE [Concomitant]
     Dosage: 100 UG, UNK
  18. PREDNISONE [Concomitant]
     Dosage: UNK
  19. WARFARIN [Concomitant]
     Dosage: 1 MG, UNK

REACTIONS (7)
  - Joint swelling [Unknown]
  - Arthralgia [Unknown]
  - Musculoskeletal pain [Unknown]
  - Pain in extremity [Unknown]
  - Peripheral swelling [Unknown]
  - Drug ineffective [Unknown]
  - Hepatic enzyme increased [Unknown]
